FAERS Safety Report 18580902 (Version 1)
Quarter: 2020Q4

REPORT INFORMATION
  Report Type: Spontaneous
  Country: CA (occurrence: CA)
  Receive Date: 20201204
  Receipt Date: 20201204
  Transmission Date: 20210114
  Serious: Yes (Hospitalization)
  Sender: FDA-Public Use
  Company Number: CA-JNJFOC-20201148709

PATIENT
  Age: 65 Year
  Sex: Female

DRUGS (1)
  1. EVICEL [Suspect]
     Active Substance: FIBRINOGEN HUMAN\THROMBIN HUMAN
     Indication: TISSUE SEALING
     Route: 061
     Dates: start: 201604

REACTIONS (4)
  - Product use in unapproved indication [Unknown]
  - Seroma [Recovered/Resolved]
  - Post procedural infection [Recovered/Resolved]
  - Off label use [Unknown]
